FAERS Safety Report 11096398 (Version 1)
Quarter: 2015Q2

REPORT INFORMATION
  Report Type: Spontaneous
  Country: US (occurrence: None)
  Receive Date: 20150506
  Receipt Date: 20150506
  Transmission Date: 20150821
  Serious: Yes (Other)
  Sender: FDA-Public Use
  Company Number: None

PATIENT
  Age: 67 Year
  Sex: Female
  Weight: 68.04 kg

DRUGS (3)
  1. VITAMINS MULTI [Suspect]
     Active Substance: VITAMINS
  2. METFORMIN HYDROCHLORIDE. [Suspect]
     Active Substance: METFORMIN HYDROCHLORIDE
  3. FAMOTIDINE. [Suspect]
     Active Substance: FAMOTIDINE
     Indication: GASTROINTESTINAL DISORDER
     Dosage: 1 PILL
     Route: 048
     Dates: start: 20150216, end: 20150415

REACTIONS (5)
  - Vision blurred [None]
  - Eyelid oedema [None]
  - Photosensitivity reaction [None]
  - Ocular hyperaemia [None]
  - Dysgeusia [None]

NARRATIVE: CASE EVENT DATE: 20150505
